FAERS Safety Report 6344074-X (Version None)
Quarter: 2009Q3

REPORT INFORMATION
  Report Type: 
  Country: None (occurrence: None)
  Receive Date: 20090908
  Receipt Date: 20090826
  Transmission Date: 20100115
  Serious: Yes (Life-Threatening)
  Sender: FDA-Public Use
  Company Number: JP-MERCK-0908USA04948

PATIENT
  Age: 33 Year
  Sex: Male

DRUGS (7)
  1. PEPCID [Suspect]
     Route: 048
  2. MIDAZOLAM [Suspect]
     Indication: SEDATION
     Route: 065
  3. ADALAT [Concomitant]
     Route: 048
  4. AMLODIPINE [Concomitant]
     Route: 048
  5. MICARDIS [Concomitant]
     Route: 048
  6. ZYLORIC [Concomitant]
     Route: 048
  7. FLUMAZENIL [Concomitant]
     Route: 048

REACTIONS (1)
  - NEUROLEPTIC MALIGNANT SYNDROME [None]
